FAERS Safety Report 10062185 (Version 1)
Quarter: 2014Q2

REPORT INFORMATION
  Report Type: Spontaneous
  Country: US (occurrence: None)
  Receive Date: 20140404
  Receipt Date: 20140404
  Transmission Date: 20141212
  Serious: Yes (Hospitalization)
  Sender: FDA-Public Use
  Company Number: None

PATIENT
  Age: 72 Year
  Sex: Female
  Weight: 77.3 kg

DRUGS (8)
  1. FORTEO [Suspect]
     Indication: PATHOLOGICAL FRACTURE
     Dosage: 20MCG DAILY SUBCUTANEOUSLY?06/28/2014 TO PRESENT
     Route: 058
     Dates: start: 20140628
  2. FORTEO [Suspect]
     Indication: PATHOLOGICAL FRACTURE
     Dosage: 20MCG DAILY SUBCUTANEOUSLY?06/28/2014 TO PRESENT
     Route: 058
     Dates: start: 20140628
  3. RENEXA [Concomitant]
  4. PAIN MEDS [Concomitant]
  5. TUSSIN D [Concomitant]
  6. PRO AIR INHALER [Concomitant]
  7. DILTIAZEM [Concomitant]
  8. LASIX [Concomitant]

REACTIONS (4)
  - Fall [None]
  - Cough [None]
  - Cardiac failure congestive [None]
  - Drug dose omission [None]
